FAERS Safety Report 16671916 (Version 2)
Quarter: 2019Q3

REPORT INFORMATION
  Report Type: Spontaneous
  Country: JP (occurrence: JP)
  Receive Date: 20190806
  Receipt Date: 20190821
  Transmission Date: 20191004
  Serious: Yes (Hospitalization)
  Sender: FDA-Public Use
  Company Number: JP-ROCHE-2367717

PATIENT
  Age: 3 Year
  Sex: Male

DRUGS (1)
  1. HEMLIBRA [Suspect]
     Active Substance: EMICIZUMAB-KXWH
     Indication: FACTOR VIII DEFICIENCY
     Dosage: DOSAGE IS UNCERTAIN.
     Route: 058

REACTIONS (3)
  - Seizure [Unknown]
  - Pyrexia [Unknown]
  - Vascular device infection [Unknown]

NARRATIVE: CASE EVENT DATE: 20190727
